FAERS Safety Report 8031888-3 (Version None)
Quarter: 2012Q1

REPORT INFORMATION
  Report Type: 
  Country: None (occurrence: None)
  Receive Date: 20120109
  Receipt Date: 20111227
  Transmission Date: 20120608
  Serious: Yes (Hospitalization, Other)
  Sender: FDA-Public Use
  Company Number: US-WATSON-2011-22426

PATIENT
  Age: 27 Year
  Sex: Female

DRUGS (2)
  1. LEVONORGESTREL [Suspect]
     Indication: PRODUCT USED FOR UNKNOWN INDICATION
     Dosage: TOOK BOTH TABLETS AT ONCE
     Route: 048
  2. LEVONORGESTREL [Suspect]
     Dosage: UNK
     Route: 048

REACTIONS (4)
  - DEHYDRATION [None]
  - PYREXIA [None]
  - METRORRHAGIA [None]
  - MENSTRUATION DELAYED [None]
